FAERS Safety Report 22174885 (Version 10)
Quarter: 2023Q2

REPORT INFORMATION
  Report Type: Spontaneous
  Country: JP (occurrence: JP)
  Receive Date: 20230405
  Receipt Date: 20230620
  Transmission Date: 20230721
  Serious: Yes (Death, Life-Threatening, Hospitalization, Other)
  Sender: FDA-Public Use
  Company Number: JP-BRISTOL-MYERS SQUIBB COMPANY-2023-047595

PATIENT
  Age: 70 Year
  Sex: Female

DRUGS (8)
  1. YERVOY [Suspect]
     Active Substance: IPILIMUMAB
     Indication: Non-small cell lung cancer recurrent
     Dosage: 1 MG/KG, Q1M
     Route: 041
     Dates: start: 20220218
  2. YERVOY [Suspect]
     Active Substance: IPILIMUMAB
     Dosage: 1 MG/KG, Q1M
     Route: 041
     Dates: start: 20221214
  3. YERVOY [Suspect]
     Active Substance: IPILIMUMAB
     Dosage: 1 MG/KG, Q1M
     Route: 041
     Dates: start: 202303
  4. OPDIVO [Suspect]
     Active Substance: NIVOLUMAB
     Indication: Non-small cell lung cancer recurrent
     Route: 041
     Dates: start: 20220218
  5. OPDIVO [Suspect]
     Active Substance: NIVOLUMAB
     Route: 041
     Dates: start: 20221214
  6. OPDIVO [Suspect]
     Active Substance: NIVOLUMAB
     Route: 041
     Dates: start: 202303
  7. CARBOPLATIN [Concomitant]
     Active Substance: CARBOPLATIN
     Indication: Non-small cell lung cancer recurrent
     Dates: start: 20220218
  8. PEMETREXED [Concomitant]
     Active Substance: PEMETREXED
     Indication: Non-small cell lung cancer recurrent
     Dates: start: 20220218

REACTIONS (17)
  - Cytokine release syndrome [Fatal]
  - Blood pressure decreased [Unknown]
  - Pyrexia [Unknown]
  - Pneumonitis [Recovered/Resolved]
  - General physical health deterioration [Unknown]
  - Off label use [Unknown]
  - Metabolic acidosis [Unknown]
  - Radiation pneumonitis [Fatal]
  - Septic shock [Unknown]
  - Disseminated intravascular coagulation [Unknown]
  - Kidney enlargement [Unknown]
  - Pain in extremity [Unknown]
  - Hypoaesthesia [Unknown]
  - C-reactive protein increased [Unknown]
  - Cardio-respiratory arrest [Unknown]
  - Non-small cell lung cancer [Unknown]
  - Coagulation test abnormal [Unknown]

NARRATIVE: CASE EVENT DATE: 20221019
